FAERS Safety Report 7483610-7 (Version None)
Quarter: 2011Q2

REPORT INFORMATION
  Report Type: 
  Country: None (occurrence: None)
  Receive Date: 20110517
  Receipt Date: 20110510
  Transmission Date: 20111010
  Serious: Yes (Other)
  Sender: FDA-Public Use
  Company Number: US-PFIZER INC-2011028401

PATIENT
  Sex: Male
  Weight: 109 kg

DRUGS (3)
  1. EFFEXOR [Suspect]
     Indication: DEPRESSION
     Dosage: 225 MG, 1X/DAY
  2. EFFEXOR [Suspect]
     Dosage: UNK
     Route: 048
     Dates: start: 20090101, end: 20110101
  3. INSULIN [Concomitant]
     Indication: DIABETES MELLITUS
     Dosage: UNK

REACTIONS (3)
  - DIPLOPIA [None]
  - ANGER [None]
  - ABNORMAL DREAMS [None]
